FAERS Safety Report 4953948-3 (Version None)
Quarter: 2006Q1

REPORT INFORMATION
  Report Type: 
  Country: None (occurrence: None)
  Receive Date: 20060327
  Receipt Date: 20060315
  Transmission Date: 20060701
  Serious: Yes (Other)
  Sender: FDA-Public Use
  Company Number: US-BRISTOL-MYERS SQUIBB COMPANY-13325964

PATIENT
  Age: 52 Year
  Sex: Male

DRUGS (3)
  1. ARIPIPRAZOLE [Suspect]
     Indication: SCHIZOPHRENIA, PARANOID TYPE
     Route: 048
  2. OLANZAPINE [Concomitant]
  3. OLANZAPINE [Concomitant]
     Indication: ANXIETY
     Route: 048

REACTIONS (1)
  - SCHIZOPHRENIA [None]
